FAERS Safety Report 16589605 (Version 2)
Quarter: 2022Q2

REPORT INFORMATION
  Report Type: Spontaneous
  Country: US (occurrence: US)
  Receive Date: 20190718
  Receipt Date: 20220413
  Transmission Date: 20220720
  Serious: Yes (Other)
  Sender: FDA-Public Use
  Company Number: US-TAKEDA-2019TUS042344

PATIENT
  Age: 61 Year
  Sex: Female
  Weight: 90.703 kg

DRUGS (4)
  1. DEXILANT [Suspect]
     Active Substance: DEXLANSOPRAZOLE
     Indication: Gastrooesophageal reflux disease
     Dosage: UNK
     Route: 065
  2. DEXILANT [Suspect]
     Active Substance: DEXLANSOPRAZOLE
     Indication: Hiatus hernia
  3. RANITIDINE [Concomitant]
     Active Substance: RANITIDINE
     Indication: Flatulence
     Dosage: UNK
  4. CELEBREX [Concomitant]
     Active Substance: CELECOXIB
     Dosage: UNK

REACTIONS (19)
  - Duodenal ulcer [Unknown]
  - Anal fissure [Recovered/Resolved]
  - Anal fissure haemorrhage [Recovered/Resolved]
  - Food allergy [Recovered/Resolved]
  - Oesophageal disorder [Recovered/Resolved]
  - Pollakiuria [Recovered/Resolved]
  - Abdominal distension [Recovered/Resolved]
  - Proctalgia [Recovered/Resolved]
  - Hiatus hernia [Unknown]
  - Condition aggravated [Unknown]
  - Anorectal discomfort [Recovered/Resolved]
  - Haemorrhoids [Not Recovered/Not Resolved]
  - Cough [Recovered/Resolved]
  - Dehydration [Recovered/Resolved]
  - Flatulence [Recovered/Resolved]
  - Feeling abnormal [Unknown]
  - Dyspepsia [Unknown]
  - Vomiting [Unknown]
  - Constipation [Recovered/Resolved]
